FAERS Safety Report 9030704 (Version 2)
Quarter: 2013Q2

REPORT INFORMATION
  Report Type: Spontaneous
  Country: US (occurrence: US)
  Receive Date: 20130123
  Receipt Date: 20130408
  Transmission Date: 20140414
  Serious: No
  Sender: FDA-Public Use
  Company Number: US-PFIZER INC-2013026682

PATIENT
  Age: 54 Year
  Sex: Female

DRUGS (11)
  1. LYRICA [Suspect]
     Indication: PAIN IN EXTREMITY
     Dosage: 75 MG, 1X/DAY (AT MORNING)
     Route: 048
     Dates: start: 201210, end: 20121201
  2. LYRICA [Suspect]
     Indication: ARTHRALGIA
  3. LYRICA [Suspect]
     Indication: BACK PAIN
  4. NORVASC [Concomitant]
     Indication: HYPERTENSION
     Dosage: 10 MG, 1X/DAY
     Dates: start: 200307
  5. PROTONIX [Concomitant]
     Indication: GASTROOESOPHAGEAL REFLUX DISEASE
     Dosage: 40 MG, 1X/DAY
     Dates: start: 20021114
  6. CELEBREX [Concomitant]
     Indication: BACK PAIN
     Dosage: 200 MG, 1X/DAY
     Dates: start: 20030715
  7. CELEBREX [Concomitant]
     Indication: ARTHRALGIA
  8. VICODIN [Concomitant]
     Dosage: 5/500 ONE ONCE DAILY PRN
  9. TRAMADOL [Concomitant]
     Dosage: 50 MG, 1X/DAY (PRN)
  10. ATENOLOL [Concomitant]
     Dosage: 25 MG, 1X/DAY
  11. LISINOPRIL [Concomitant]
     Dosage: UNK

REACTIONS (5)
  - Off label use [Unknown]
  - Gastric disorder [Recovered/Resolved]
  - Nervousness [Recovered/Resolved]
  - Chest discomfort [Recovered/Resolved]
  - Dizziness [Recovered/Resolved]
